FAERS Safety Report 8688774 (Version 5)
Quarter: 2015Q1

REPORT INFORMATION
  Report Type: Spontaneous
  Country: US (occurrence: US)
  Receive Date: 20120727
  Receipt Date: 20150130
  Transmission Date: 20150721
  Serious: Yes (Hospitalization, Disabling, Other)
  Sender: FDA-Public Use
  Company Number: US-009507513-1207USA006543

PATIENT
  Sex: Female
  Weight: 49.89 kg

DRUGS (8)
  1. PLAQUENIL [Concomitant]
     Active Substance: HYDROXYCHLOROQUINE SULFATE
     Indication: SYSTEMIC LUPUS ERYTHEMATOSUS
     Dosage: 200 MG, QD
     Dates: start: 1999, end: 201203
  2. ACTONEL [Suspect]
     Active Substance: RISEDRONATE SODIUM
     Indication: OSTEOPOROSIS
     Dosage: 35 MG, UNK
     Dates: start: 200207, end: 200209
  3. FOSAMAX [Suspect]
     Active Substance: ALENDRONATE SODIUM
     Indication: OSTEOPOROSIS
     Dosage: 10 MG, UNK
     Route: 048
     Dates: start: 199908, end: 200103
  4. FOSAMAX [Suspect]
     Active Substance: ALENDRONATE SODIUM
     Dosage: 70 MG, UNK
     Route: 048
     Dates: start: 20010214, end: 200205
  5. ALENDRONATE SODIUM. [Suspect]
     Active Substance: ALENDRONATE SODIUM
     Route: 048
  6. FOSAMAX [Suspect]
     Active Substance: ALENDRONATE SODIUM
     Dosage: 70 MG, UNK
     Route: 048
     Dates: start: 200210, end: 200311
  7. ACTONEL [Suspect]
     Active Substance: RISEDRONATE SODIUM
     Dosage: 150 MG, UNK
     Route: 048
     Dates: start: 200911, end: 201012
  8. FOSAMAX [Suspect]
     Active Substance: ALENDRONATE SODIUM
     Dosage: 70 MG, QW
     Route: 048
     Dates: start: 200507, end: 20091029

REACTIONS (73)
  - Open reduction of fracture [Unknown]
  - Femur fracture [Not Recovered/Not Resolved]
  - Femur fracture [Unknown]
  - Rheumatoid arthritis [Unknown]
  - Pain [Not Recovered/Not Resolved]
  - Haematuria [Unknown]
  - Lacunar infarction [Unknown]
  - Bursitis [Not Recovered/Not Resolved]
  - Dyspnoea [Unknown]
  - Hernia [Unknown]
  - Myalgia [Unknown]
  - Arthralgia [Unknown]
  - Open reduction of fracture [Unknown]
  - Open reduction of fracture [Unknown]
  - Cerebral small vessel ischaemic disease [Unknown]
  - Adverse event [Unknown]
  - Osteoarthritis [Unknown]
  - Procedural anxiety [Unknown]
  - Asthma [Unknown]
  - Headache [Unknown]
  - Muscle spasms [Unknown]
  - Oedema peripheral [Recovered/Resolved]
  - Drug ineffective [Unknown]
  - Blood calcium decreased [Unknown]
  - Depression [Unknown]
  - Intervertebral disc degeneration [Unknown]
  - Temporomandibular joint syndrome [Unknown]
  - Eye pain [Unknown]
  - Weight decreased [Unknown]
  - Protein deficiency [Unknown]
  - Anaemia [Unknown]
  - Nausea [Unknown]
  - Ankle fracture [Unknown]
  - Osteopenia [Not Recovered/Not Resolved]
  - Facet joint syndrome [Unknown]
  - Antinuclear antibody positive [Unknown]
  - Vision blurred [Unknown]
  - Fatigue [Unknown]
  - Anxiety [Unknown]
  - Musculoskeletal chest pain [Unknown]
  - Constipation [Unknown]
  - Femur fracture [Unknown]
  - Raynaud^s phenomenon [Unknown]
  - Dry mouth [Unknown]
  - Epicondylitis [Unknown]
  - Peptic ulcer [Unknown]
  - Fall [Unknown]
  - Haemorrhage [Unknown]
  - Back pain [Not Recovered/Not Resolved]
  - Gastrooesophageal reflux disease [Unknown]
  - Low turnover osteopathy [Unknown]
  - Hot flush [Unknown]
  - Biopsy kidney [Unknown]
  - Vitamin D decreased [Unknown]
  - Joint swelling [Unknown]
  - Cerebrovascular accident [Unknown]
  - Proteinuria [Unknown]
  - Hypoaesthesia [Recovered/Resolved]
  - Osteoarthritis [Recovering/Resolving]
  - Hyperthyroidism [Recovered/Resolved with Sequelae]
  - Hypothyroidism [Unknown]
  - Chest pain [Unknown]
  - Limb asymmetry [Unknown]
  - Dyspepsia [Unknown]
  - Polyarthritis [Unknown]
  - Gastric disorder [Unknown]
  - Amnesia [Unknown]
  - Dry eye [Unknown]
  - Arthritis [Unknown]
  - Fibromyalgia [Unknown]
  - Blood parathyroid hormone increased [Unknown]
  - Endodontic procedure [Unknown]
  - Arthralgia [Unknown]

NARRATIVE: CASE EVENT DATE: 1999
